FAERS Safety Report 8951200 (Version 25)
Quarter: 2015Q3

REPORT INFORMATION
  Report Type: Report from Study
  Country: CA (occurrence: CA)
  Receive Date: 20121207
  Receipt Date: 20150922
  Transmission Date: 20151125
  Serious: Yes (Death, Hospitalization, Other)
  Sender: FDA-Public Use
  Company Number: PHHY2011CA06376

PATIENT
  Age: 64 Year
  Sex: Female

DRUGS (6)
  1. SANDOSTATIN [Suspect]
     Active Substance: OCTREOTIDE ACETATE
     Indication: NEUROENDOCRINE TUMOUR
     Dosage: 200 UG, QD
     Route: 058
  2. AFINITOR [Suspect]
     Active Substance: EVEROLIMUS
     Indication: NEUROENDOCRINE TUMOUR
     Dosage: 10 MG, QD
     Route: 048
     Dates: start: 20140613, end: 20141201
  3. SANDOSTATIN LAR DEPOT [Suspect]
     Active Substance: OCTREOTIDE ACETATE
     Dosage: 60 MG, EVERY 2 WEEKS
     Route: 030
     Dates: end: 20150909
  4. SANDOSTATIN [Suspect]
     Active Substance: OCTREOTIDE ACETATE
     Dosage: 100 MMOL/L, BID
     Route: 030
  5. SANDOSTATIN [Suspect]
     Active Substance: OCTREOTIDE ACETATE
     Dosage: 200 UG, BID
     Route: 058
  6. SANDOSTATIN LAR DEPOT [Suspect]
     Active Substance: OCTREOTIDE ACETATE
     Indication: NEUROENDOCRINE TUMOUR
     Dosage: 60 MG, EVERY 3 WEEKS
     Route: 030
     Dates: start: 20070314

REACTIONS (41)
  - Stomatitis [Unknown]
  - Asthenia [Unknown]
  - Blood pressure systolic increased [Unknown]
  - Depression [Unknown]
  - Ureteral disorder [Unknown]
  - Renal disorder [Unknown]
  - Fluid retention [Unknown]
  - Movement disorder [Recovered/Resolved]
  - Nausea [Unknown]
  - Abdominal discomfort [Unknown]
  - Intestinal obstruction [Unknown]
  - Pulmonary embolism [Recovered/Resolved]
  - Flushing [Unknown]
  - Blood urine present [Unknown]
  - Peripheral swelling [Unknown]
  - Malaise [Unknown]
  - Diarrhoea [Unknown]
  - Abdominal pain [Not Recovered/Not Resolved]
  - Blood creatinine increased [Unknown]
  - Arthralgia [Unknown]
  - Calculus ureteric [Unknown]
  - Urinary tract infection [Unknown]
  - Discomfort [Recovered/Resolved]
  - Weight decreased [Unknown]
  - Gastrointestinal pain [Unknown]
  - Ischaemia [Unknown]
  - Musculoskeletal chest pain [Recovered/Resolved]
  - Decreased appetite [Unknown]
  - Acute kidney injury [Unknown]
  - Dehydration [Unknown]
  - Ascites [Unknown]
  - General physical health deterioration [Unknown]
  - Blood pressure diastolic decreased [Unknown]
  - Nephrolithiasis [Unknown]
  - Haemoglobin decreased [Recovering/Resolving]
  - Malignant neoplasm progression [Unknown]
  - Death [Fatal]
  - Pain in extremity [Recovered/Resolved]
  - Joint swelling [Unknown]
  - Chest pain [Unknown]
  - Injection site reaction [Unknown]

NARRATIVE: CASE EVENT DATE: 201111
